FAERS Safety Report 7683893-4 (Version None)
Quarter: 2011Q3

REPORT INFORMATION
  Report Type: 
  Country: None (occurrence: None)
  Receive Date: 20110815
  Receipt Date: 20110809
  Transmission Date: 20111222
  Serious: Yes (Hospitalization)
  Sender: FDA-Public Use
  Company Number: US-GILEAD-2011-0041140

PATIENT
  Sex: Female

DRUGS (2)
  1. REVLIMID [Concomitant]
  2. LETAIRIS [Suspect]
     Indication: PULMONARY HYPERTENSION
     Route: 048
     Dates: start: 20110512

REACTIONS (2)
  - HOSPICE CARE [None]
  - UNEVALUABLE EVENT [None]
